FAERS Safety Report 15411901 (Version 2)
Quarter: 2018Q4

REPORT INFORMATION
  Report Type: Spontaneous
  Country: US (occurrence: US)
  Receive Date: 20180921
  Receipt Date: 20181201
  Transmission Date: 20190204
  Serious: Yes (Hospitalization)
  Sender: FDA-Public Use
  Company Number: US-JNJFOC-20180915384

PATIENT
  Age: 52 Year
  Sex: Female
  Weight: 111 kg

DRUGS (1)
  1. XARELTO [Suspect]
     Active Substance: RIVAROXABAN
     Indication: ARTERIAL THROMBOSIS
     Dosage: 15 MG TWICE DAILY FOR 20 DAYS AND 20 MG ONCE DAILY FOR 120 DAYS
     Route: 048
     Dates: start: 20160305, end: 201607

REACTIONS (1)
  - Haemorrhagic arteriovenous malformation [Unknown]

NARRATIVE: CASE EVENT DATE: 201603
